FAERS Safety Report 16927016 (Version 1)
Quarter: 2019Q4

REPORT INFORMATION
  Report Type: Spontaneous
  Country: US (occurrence: US)
  Receive Date: 20191016
  Receipt Date: 20191016
  Transmission Date: 20200122
  Serious: No
  Sender: FDA-Public Use
  Company Number: US-TEVA-2019-US-1122404

PATIENT
  Age: 72 Year
  Sex: Female

DRUGS (1)
  1. CLONAZEPAM TABLETS 0.5MG [Suspect]
     Active Substance: CLONAZEPAM

REACTIONS (1)
  - Fatigue [Unknown]
